FAERS Safety Report 22536648 (Version 1)
Quarter: 2023Q2

REPORT INFORMATION
  Report Type: Spontaneous
  Country: GB (occurrence: GB)
  Receive Date: 20230608
  Receipt Date: 20230608
  Transmission Date: 20230721
  Serious: Yes (Other)
  Sender: FDA-Public Use
  Company Number: GB-MHRA-ADR 27832992

PATIENT
  Sex: Female

DRUGS (1)
  1. PREGABALIN [Suspect]
     Active Substance: PREGABALIN
     Indication: Product used for unknown indication
     Dosage: 300 MILLIGRAM, TID, 150MG - 2 CAPSULES THREE TIMES A DAY; (MEDICATION ERROR, ACTUAL DOSE: 50 MG, 2 C
     Route: 065
     Dates: start: 20230303, end: 20230324

REACTIONS (3)
  - Medication error [Unknown]
  - Fatigue [Not Recovered/Not Resolved]
  - Mental impairment [Not Recovered/Not Resolved]

NARRATIVE: CASE EVENT DATE: 20230303
